FAERS Safety Report 6320736-5 (Version None)
Quarter: 2009Q3

REPORT INFORMATION
  Report Type: 
  Country: None (occurrence: None)
  Receive Date: 20090822
  Receipt Date: 20081231
  Transmission Date: 20100115
  Serious: No
  Sender: FDA-Public Use
  Company Number: US-ABBOTT-08P-163-0491329-00

PATIENT
  Sex: Male

DRUGS (3)
  1. NIASPAN [Suspect]
     Indication: BLOOD CHOLESTEROL INCREASED
     Route: 048
     Dates: start: 20081201, end: 20081204
  2. NIASPAN [Suspect]
     Route: 048
     Dates: start: 20081204, end: 20081205
  3. NIASPAN [Suspect]
     Route: 048
     Dates: start: 20081205

REACTIONS (3)
  - DIZZINESS [None]
  - FEELING ABNORMAL [None]
  - FLUSHING [None]
